FAERS Safety Report 9640082 (Version 5)
Quarter: 2015Q4

REPORT INFORMATION
  Report Type: Report from Study
  Country: CA (occurrence: CA)
  Receive Date: 20131023
  Receipt Date: 20151015
  Transmission Date: 20160305
  Serious: Yes (Other)
  Sender: FDA-Public Use
  Company Number: PHHY2013CA093722

PATIENT
  Age: 68 Year
  Sex: Male

DRUGS (4)
  1. SANDOSTATIN LAR DEPOT [Suspect]
     Active Substance: OCTREOTIDE ACETATE
     Dosage: 30 MG, EVERY FOUR WEEKS
     Route: 030
  2. SANDOSTATIN LAR DEPOT [Suspect]
     Active Substance: OCTREOTIDE ACETATE
     Dosage: UNK UNK, Q2MO
     Route: 030
  3. SANDOSTATIN [Suspect]
     Active Substance: OCTREOTIDE ACETATE
     Indication: NEUROENDOCRINE TUMOUR
     Dosage: 50 UG, ONCE/SINGLE
     Route: 058
     Dates: start: 20130503, end: 20130503
  4. SANDOSTATIN LAR DEPOT [Suspect]
     Active Substance: OCTREOTIDE ACETATE
     Indication: NEUROENDOCRINE TUMOUR
     Dosage: 30 MG, ONCE A MONTH (QMO)
     Route: 030
     Dates: start: 20130529, end: 20130826

REACTIONS (8)
  - Pain [Unknown]
  - Off label use [Unknown]
  - Hot flush [Unknown]
  - Blood pressure diastolic decreased [Unknown]
  - Inappropriate schedule of drug administration [Unknown]
  - Peripheral swelling [Unknown]
  - Lung neoplasm [Unknown]
  - Dyspnoea [Unknown]

NARRATIVE: CASE EVENT DATE: 20150721
